FAERS Safety Report 23558426 (Version 4)
Quarter: 2025Q2

REPORT INFORMATION
  Report Type: Report from Study
  Country: FR (occurrence: FR)
  Receive Date: 20240223
  Receipt Date: 20250515
  Transmission Date: 20250716
  Serious: Yes (Death, Hospitalization, Other)
  Sender: NOVARTIS
  Company Number: FR-002147023-NVSC2024FR035713

PATIENT
  Sex: Female
  Weight: 68 kg

DRUGS (3)
  1. KISQALI [Suspect]
     Active Substance: RIBOCICLIB SUCCINATE
     Indication: Hormone receptor positive HER2 negative breast cancer
     Dosage: 400 MG, QD
     Route: 048
     Dates: start: 20231016, end: 20231027
  2. KISQALI [Suspect]
     Active Substance: RIBOCICLIB SUCCINATE
     Dosage: 400 MG, QD
     Route: 048
     Dates: start: 20231113, end: 20240212
  3. KISQALI [Suspect]
     Active Substance: RIBOCICLIB SUCCINATE
     Dosage: 200 MG, QD
     Route: 048
     Dates: start: 20240212, end: 20240712

REACTIONS (12)
  - Thrombotic microangiopathy [Fatal]
  - Meningitis [Fatal]
  - Breast cancer metastatic [Fatal]
  - Malignant neoplasm progression [Fatal]
  - Ankle fracture [Recovered/Resolved with Sequelae]
  - Cholestasis [Not Recovered/Not Resolved]
  - Blood bilirubin increased [Unknown]
  - Gamma-glutamyltransferase increased [Unknown]
  - Blood alkaline phosphatase increased [Unknown]
  - Pancytopenia [Recovered/Resolved]
  - Symptom recurrence [Unknown]
  - Performance status decreased [Recovered/Resolved]

NARRATIVE: CASE EVENT DATE: 20240212
